FAERS Safety Report 7578012-9 (Version None)
Quarter: 2011Q2

REPORT INFORMATION
  Report Type: 
  Country: None (occurrence: None)
  Receive Date: 20110628
  Receipt Date: 20110622
  Transmission Date: 20111010
  Serious: Yes (Death, Hospitalization, Other)
  Sender: FDA-Public Use
  Company Number: EC-ROCHE-785290

PATIENT
  Sex: Female
  Weight: 62.1 kg

DRUGS (1)
  1. BONIVA [Suspect]
     Indication: OSTEOPOROSIS
     Route: 042
     Dates: end: 20110328

REACTIONS (2)
  - JAUNDICE [None]
  - HEPATIC FAILURE [None]
